FAERS Safety Report 8890931 (Version 4)
Quarter: 2013Q2

REPORT INFORMATION
  Report Type: Spontaneous
  Country: GB (occurrence: GB)
  Receive Date: 20121107
  Receipt Date: 20130517
  Transmission Date: 20140414
  Serious: Yes (Other)
  Sender: FDA-Public Use
  Company Number: GB-ROCHE-1153090

PATIENT
  Age: 61 Year
  Sex: Male

DRUGS (2)
  1. NAPROXEN [Suspect]
     Indication: GOUT
     Route: 065
     Dates: start: 20120907, end: 20120915
  2. FELDENE [Concomitant]
     Indication: ANALGESIC THERAPY
     Dosage: 5 MG/GM
     Route: 061

REACTIONS (3)
  - Oral discomfort [Recovering/Resolving]
  - Mouth ulceration [Recovered/Resolved]
  - Toothache [Recovering/Resolving]
